FAERS Safety Report 8340642-4 (Version None)
Quarter: 2012Q2

REPORT INFORMATION
  Report Type: 
  Country: None (occurrence: None)
  Receive Date: 20120507
  Receipt Date: 20091001
  Transmission Date: 20120825
  Serious: No
  Sender: FDA-Public Use
  Company Number: US-TEVA-2009010933

PATIENT
  Sex: Female

DRUGS (10)
  1. ALLOPURINOL [Concomitant]
  2. BACTRIM [Concomitant]
  3. LITHIUM CARBONATE [Concomitant]
  4. FISH OIL, MULTIVITAMIN [Concomitant]
  5. TEMAZEPAM [Concomitant]
  6. ACYCLOVIR [Concomitant]
  7. SYNTHROID [Concomitant]
  8. SIMVASTATIN [Concomitant]
  9. LISINOPRIL [Concomitant]
  10. TREANDA [Suspect]
     Indication: B-CELL SMALL LYMPHOCYTIC LYMPHOMA
     Route: 042

REACTIONS (3)
  - CONFUSIONAL STATE [None]
  - RASH [None]
  - BLOOD CALCIUM INCREASED [None]
